FAERS Safety Report 24978222 (Version 1)
Quarter: 2025Q1

REPORT INFORMATION
  Report Type: Spontaneous
  Country: BE (occurrence: BE)
  Receive Date: 20250217
  Receipt Date: 20250217
  Transmission Date: 20250409
  Serious: Yes (Other)
  Sender: NOVARTIS
  Company Number: BE-002147023-NVSC2025BE026273

PATIENT
  Sex: Female

DRUGS (1)
  1. BEOVU [Suspect]
     Active Substance: BROLUCIZUMAB-DBLL
     Indication: Product used for unknown indication
     Route: 031
     Dates: start: 20220823

REACTIONS (4)
  - Retinal detachment [Unknown]
  - Retinal exudates [Recovering/Resolving]
  - Keratic precipitates [Unknown]
  - Uveitis [Unknown]

NARRATIVE: CASE EVENT DATE: 20220101
